FAERS Safety Report 23890913 (Version 2)
Quarter: 2024Q2

REPORT INFORMATION
  Report Type: Spontaneous
  Country: US (occurrence: US)
  Receive Date: 20240523
  Receipt Date: 20240628
  Transmission Date: 20240716
  Serious: Yes (Hospitalization, Other)
  Sender: FDA-Public Use
  Company Number: US-BAYER-2024A073889

PATIENT
  Age: 69 Year
  Sex: Female

DRUGS (4)
  1. JIVI [Suspect]
     Active Substance: DAMOCTOCOG ALFA PEGOL
     Indication: Factor VIII deficiency
     Dosage: 4500 IU ,EVERY5 DAYS
     Route: 042
     Dates: start: 202301, end: 202301
  2. JIVI [Suspect]
     Active Substance: DAMOCTOCOG ALFA PEGOL
     Indication: Factor VIII deficiency
     Dosage: 4500 IU , EVERY 5 DAYS
     Route: 042
     Dates: start: 202301, end: 202301
  3. JIVI [Suspect]
     Active Substance: DAMOCTOCOG ALFA PEGOL
     Indication: Prophylaxis
     Dosage: 2 DF, INFUSE 4500 UNITS (4050-4950) SLOW IV PUSH
     Route: 042
     Dates: start: 20240503, end: 20240503
  4. JIVI [Suspect]
     Active Substance: DAMOCTOCOG ALFA PEGOL
     Indication: Factor VIII deficiency
     Dosage: INFUSE 4500 SLOW IV PUSH EVERY 5 DAYS
     Route: 042

REACTIONS (4)
  - Haemarthrosis [None]
  - Haemarthrosis [Recovered/Resolved]
  - Eye haemorrhage [None]
  - Eye operation [None]

NARRATIVE: CASE EVENT DATE: 20240503
